FAERS Safety Report 15644987 (Version 5)
Quarter: 2019Q1

REPORT INFORMATION
  Report Type: Spontaneous
  Country: US (occurrence: US)
  Receive Date: 20181121
  Receipt Date: 20190326
  Transmission Date: 20190417
  Serious: Yes (Other)
  Sender: FDA-Public Use
  Company Number: US-BAUSCH-BL-2018-031937

PATIENT
  Age: 69 Year
  Sex: Female
  Weight: 72.19 kg

DRUGS (25)
  1. FLUOXETINE HCL [Concomitant]
     Active Substance: FLUOXETINE HYDROCHLORIDE
     Indication: PRODUCT USED FOR UNKNOWN INDICATION
     Route: 048
     Dates: start: 20180118
  2. FERROUS SULFATE. [Concomitant]
     Active Substance: FERROUS SULFATE
     Indication: PRODUCT USED FOR UNKNOWN INDICATION
     Dosage: 325 (65 FE) MG
     Route: 048
  3. CLOTRIMAZOLE AND BETAMETHASONE [Concomitant]
     Active Substance: BETAMETHASONE\CLOTRIMAZOLE
     Indication: ORAL MUCOSAL ERUPTION
     Dosage: 1-0.05 PERCENT  APPLY TO AFFECTED AREA EXTERNALLY ON CORNERS OF MOUTH RASH AS NEEDED
     Route: 061
  4. DIPHENHYDRAMINE. [Concomitant]
     Active Substance: DIPHENHYDRAMINE
     Indication: PRODUCT USED FOR UNKNOWN INDICATION
     Dosage: ONE AS NEEDED
  5. FOLIC ACID. [Concomitant]
     Active Substance: FOLIC ACID
     Indication: PRODUCT USED FOR UNKNOWN INDICATION
     Route: 048
     Dates: start: 20161020
  6. LORATADINE. [Concomitant]
     Active Substance: LORATADINE
     Indication: PRODUCT USED FOR UNKNOWN INDICATION
     Route: 048
  7. KETOCONAZOLE. [Concomitant]
     Active Substance: KETOCONAZOLE
     Indication: SKIN EXFOLIATION
     Dosage: APPLY 1 APPLICATION EXTERNALLY TO AFFECTED AREA FOR UP TO 4 WEEKS
     Route: 061
  8. CETIRIZINE HCL [Concomitant]
     Active Substance: CETIRIZINE HYDROCHLORIDE
     Indication: RHINITIS ALLERGIC
     Dosage: AS NEEDED
     Route: 048
     Dates: start: 20180224
  9. HYDROXYCHLOROQUINE SULFATE. [Concomitant]
     Active Substance: HYDROXYCHLOROQUINE SULFATE
     Indication: PRODUCT USED FOR UNKNOWN INDICATION
     Dosage: WITH FOOD OR MILK
     Route: 048
     Dates: start: 20150625
  10. SUPER CALCIUM [Concomitant]
     Indication: PRODUCT USED FOR UNKNOWN INDICATION
     Route: 048
  11. ERYTHROMYCIN. [Suspect]
     Active Substance: ERYTHROMYCIN
     Indication: BLEPHAROPLASTY
     Route: 061
     Dates: start: 20181105, end: 20181110
  12. FLUOXETINE HCL [Concomitant]
     Active Substance: FLUOXETINE HYDROCHLORIDE
     Route: 048
  13. MORPHINE SULFATE. [Concomitant]
     Active Substance: MORPHINE SULFATE
     Indication: PRODUCT USED FOR UNKNOWN INDICATION
     Route: 048
  14. WELLBUTRIN [Concomitant]
     Active Substance: BUPROPION HYDROCHLORIDE
     Indication: PRODUCT USED FOR UNKNOWN INDICATION
     Dosage: EXTENDED RELEASE 12 HOURS
     Route: 048
     Dates: start: 20180412
  15. TIZANIDINE HCL [Concomitant]
     Active Substance: TIZANIDINE HYDROCHLORIDE
     Indication: PRODUCT USED FOR UNKNOWN INDICATION
     Dosage: AS NEEDED
     Route: 048
  16. OMEPRAZOLE. [Concomitant]
     Active Substance: OMEPRAZOLE
     Indication: PRODUCT USED FOR UNKNOWN INDICATION
     Route: 048
     Dates: start: 20170322
  17. LORAZEPAM. [Concomitant]
     Active Substance: LORAZEPAM
     Indication: PRODUCT USED FOR UNKNOWN INDICATION
     Dosage: AS NEEDED
  18. KETOCONAZOLE. [Concomitant]
     Active Substance: KETOCONAZOLE
     Indication: PRURITUS
  19. HYDROCODONE/ACETAMINOPHEN [Concomitant]
     Active Substance: ACETAMINOPHEN\HYDROCODONE
     Indication: PRODUCT USED FOR UNKNOWN INDICATION
     Dosage: 5-500 MG
     Route: 048
  20. BENLYSTA [Concomitant]
     Active Substance: BELIMUMAB
     Indication: PRODUCT USED FOR UNKNOWN INDICATION
  21. RESTASIS [Concomitant]
     Active Substance: CYCLOSPORINE
     Indication: PRODUCT USED FOR UNKNOWN INDICATION
     Dosage: 1 NULL INTO AFFECTED EYE OPHTHALMIC TWICE A DAY
     Route: 047
  22. LIDOCAINE. [Concomitant]
     Active Substance: LIDOCAINE
     Indication: PRODUCT USED FOR UNKNOWN INDICATION
     Dosage: PATCH, EXTERNALLY
     Route: 061
  23. TAB A VITE [Concomitant]
     Indication: PRODUCT USED FOR UNKNOWN INDICATION
     Route: 048
  24. TOPIRAMATE. [Concomitant]
     Active Substance: TOPIRAMATE
     Indication: PRODUCT USED FOR UNKNOWN INDICATION
     Dosage: AT BEDTIME
     Route: 048
  25. TRAZODONE HYDROCHLORIDE. [Concomitant]
     Active Substance: TRAZODONE HYDROCHLORIDE
     Indication: PRODUCT USED FOR UNKNOWN INDICATION
     Dosage: 1/2 PRN (AS NEEDED) AT BEDTIME
     Route: 048

REACTIONS (12)
  - Feeling abnormal [Recovered/Resolved]
  - Depression [Recovered/Resolved]
  - Blindness transient [Recovered/Resolved]
  - Crying [Recovered/Resolved]
  - Blindness [Recovered/Resolved]
  - Eye irritation [Recovered/Resolved]
  - Weight increased [Recovered/Resolved]
  - Hyperphagia [Recovered/Resolved]
  - Vision blurred [Recovered/Resolved]
  - Ocular discomfort [Recovered/Resolved]
  - Eye pain [Recovered/Resolved]
  - Product physical consistency issue [Unknown]

NARRATIVE: CASE EVENT DATE: 201811
